FAERS Safety Report 8956833 (Version 1)
Quarter: 2012Q4

REPORT INFORMATION
  Report Type: Spontaneous
  Country: US (occurrence: None)
  Receive Date: 20121111
  Receipt Date: 20121111
  Transmission Date: 20130627
  Serious: Yes (Other)
  Sender: FDA-Public Use
  Company Number: TPA2012A04284

PATIENT
  Age: 69 Year
  Sex: Male
  Weight: 120.66 kg

DRUGS (2)
  1. ACTOS (PIOGLITAZONE HYDROCHLORIDE) [Suspect]
     Indication: TYPE 2 DIABETES MELLITUS
     Dates: start: 1999, end: 2005
  2. METFORMIN (METFORMIN) [Concomitant]

REACTIONS (2)
  - Bladder cancer [None]
  - Prostate cancer [None]
